FAERS Safety Report 8057293-1 (Version None)
Quarter: 2012Q1

REPORT INFORMATION
  Report Type: 
  Country: None (occurrence: None)
  Receive Date: 20120119
  Receipt Date: 20120116
  Transmission Date: 20120608
  Serious: Yes (Hospitalization)
  Sender: FDA-Public Use
  Company Number: PHEH2012US001483

PATIENT
  Sex: Female

DRUGS (3)
  1. DIOVAN [Concomitant]
  2. METOPROLOL TARTRATE [Concomitant]
  3. MYFORTIC [Suspect]
     Indication: RENAL TRANSPLANT
     Dosage: 720 MG, UNK
     Route: 048
     Dates: start: 20070901

REACTIONS (1)
  - CEREBRAL HAEMORRHAGE [None]
